FAERS Safety Report 8311814-X (Version None)
Quarter: 2012Q2

REPORT INFORMATION
  Report Type: 
  Country: None (occurrence: None)
  Receive Date: 20120425
  Receipt Date: 20120418
  Transmission Date: 20120825
  Serious: Yes (Other)
  Sender: FDA-Public Use
  Company Number: BR-PFIZER INC-2012097379

PATIENT
  Age: 63 Year
  Sex: Male

DRUGS (3)
  1. XALATAN [Suspect]
     Indication: GLAUCOMA
     Dosage: 3 UG, ONE DROP IN EACH EYE ONCE DAILY
     Route: 047
     Dates: start: 20090101
  2. TIMOLOL MALEATE [Concomitant]
     Indication: GLAUCOMA
     Dosage: UNK
     Dates: start: 20090101
  3. COMBIGAN [Concomitant]
     Indication: GLAUCOMA

REACTIONS (2)
  - CATARACT [None]
  - CIRCUMSTANCE OR INFORMATION CAPABLE OF LEADING TO MEDICATION ERROR [None]
